FAERS Safety Report 5377059-0 (Version None)
Quarter: 2007Q2

REPORT INFORMATION
  Report Type: 
  Country: None (occurrence: None)
  Receive Date: 20070628
  Receipt Date: 20070628
  Transmission Date: 20071010
  Serious: Yes (Other)
  Sender: FDA-Public Use
  Company Number: None

PATIENT
  Age: 68 Year
  Sex: Male
  Weight: 68.0396 kg

DRUGS (3)
  1. FINASTERIDE [Suspect]
     Indication: BENIGN PROSTATIC HYPERPLASIA
     Dosage: 5 MG ONE PER DAY PO
     Route: 048
     Dates: start: 20070401, end: 20070412
  2. FINASTERIDE [Suspect]
     Indication: BENIGN PROSTATIC HYPERPLASIA
     Dosage: 5 MG ONE PER DAY PO
     Route: 048
     Dates: start: 20070423, end: 20070430
  3. BENAZEPRIL HYDROCHLORIDE [Concomitant]

REACTIONS (5)
  - HYPOTENSION [None]
  - PHARMACEUTICAL PRODUCT COMPLAINT [None]
  - POLLAKIURIA [None]
  - TINNITUS [None]
  - WEIGHT DECREASED [None]
